FAERS Safety Report 7332747-1 (Version None)
Quarter: 2011Q1

REPORT INFORMATION
  Report Type: 
  Country: None (occurrence: None)
  Receive Date: 20110304
  Receipt Date: 20110224
  Transmission Date: 20110831
  Serious: Yes (Hospitalization)
  Sender: FDA-Public Use
  Company Number: RU-SANOFI-AVENTIS-2011SA011881

PATIENT
  Age: 56 Year
  Sex: Female
  Weight: 80 kg

DRUGS (15)
  1. KETONAL [Concomitant]
     Route: 030
     Dates: start: 20110101, end: 20110201
  2. ARAVA [Suspect]
     Route: 048
     Dates: start: 20100401, end: 20100401
  3. ARAVA [Suspect]
     Route: 048
     Dates: end: 20070101
  4. LIDOCAINE [Concomitant]
     Route: 030
     Dates: start: 20110101, end: 20110201
  5. MOVALIS [Concomitant]
     Route: 048
     Dates: start: 20110101
  6. HYDROCORTISONE [Concomitant]
     Route: 030
     Dates: start: 20110101, end: 20110201
  7. NOVOCAIN [Concomitant]
     Dates: start: 20110101, end: 20110201
  8. SIRDALUD [Concomitant]
     Route: 048
     Dates: start: 20110101
  9. OMEPRAZOLE [Concomitant]
     Route: 048
     Dates: start: 20110101
  10. ENAP [Concomitant]
     Route: 048
     Dates: start: 20110101
  11. DIPROSPAN [Concomitant]
     Route: 014
     Dates: start: 20110101, end: 20110201
  12. POTASSIUM IODIDE [Concomitant]
     Dates: start: 20110101, end: 20110201
  13. ARAVA [Suspect]
     Indication: ANKYLOSING SPONDYLITIS
     Route: 048
     Dates: end: 20110101
  14. ARAVA [Suspect]
     Route: 048
     Dates: start: 20100401
  15. LEVOTHYROXINE SODIUM [Concomitant]
     Route: 048
     Dates: start: 20110101

REACTIONS (1)
  - HEPATIC ENZYME INCREASED [None]
